FAERS Safety Report 19178857 (Version 1)
Quarter: 2021Q2

REPORT INFORMATION
  Report Type: Spontaneous
  Country: US (occurrence: US)
  Receive Date: 20210421
  Receipt Date: 20210421
  Transmission Date: 20210717
  Serious: Yes (Other)
  Sender: FDA-Public Use
  Company Number: None

PATIENT
  Age: 67 Year
  Sex: Male
  Weight: 74.25 kg

DRUGS (8)
  1. GABAPENTIN (STOPPED AFTER TAKING ONE) [Suspect]
     Active Substance: GABAPENTIN
     Indication: PANIC ATTACK
     Dosage: ?          QUANTITY:1 CAPSULE(S);?
     Route: 048
     Dates: start: 20201025, end: 20201025
  2. MULTIVITAMIN [Concomitant]
     Active Substance: VITAMINS
  3. GABAPENTIN (STOPPED AFTER TAKING ONE) [Suspect]
     Active Substance: GABAPENTIN
     Indication: ANXIETY
     Dosage: ?          QUANTITY:1 CAPSULE(S);?
     Route: 048
     Dates: start: 20201025, end: 20201025
  4. ASPIRIN. [Concomitant]
     Active Substance: ASPIRIN
  5. GABAPENTIN (STOPPED AFTER TAKING ONE) [Suspect]
     Active Substance: GABAPENTIN
     Indication: PAIN
     Dosage: ?          QUANTITY:1 CAPSULE(S);?
     Route: 048
     Dates: start: 20201025, end: 20201025
  6. HYDROCODONE [Concomitant]
     Active Substance: HYDROCODONE
  7. TIZANIDINE. [Concomitant]
     Active Substance: TIZANIDINE
  8. PRUNE JUICE [Concomitant]

REACTIONS (1)
  - Palpitations [None]

NARRATIVE: CASE EVENT DATE: 20201025
